FAERS Safety Report 8570599-2 (Version None)
Quarter: 2012Q3

REPORT INFORMATION
  Report Type: 
  Country: None (occurrence: None)
  Receive Date: 20120804
  Receipt Date: 20120723
  Transmission Date: 20120928
  Serious: No
  Sender: FDA-Public Use
  Company Number: US-009507513-1207USA009762

PATIENT

DRUGS (10)
  1. ENALAPRIL MALEATE [Suspect]
     Dosage: 5 MG, BID
     Route: 048
  2. ZOCOR [Suspect]
     Dosage: 80 MG, EVERY EVENING
     Route: 048
  3. ASPIRIN [Suspect]
     Dosage: 81 MG, QD
     Route: 048
  4. TOPROL-XL [Suspect]
     Dosage: 50 MG, BID
     Route: 048
  5. THIAMIN HCL TAB [Suspect]
     Route: 048
  6. WARFARIN SODIUM [Suspect]
     Dosage: AS INSTRUCTED
     Route: 048
  7. CYANOCOBALAMIN [Suspect]
     Route: 048
  8. TIKOSYN [Suspect]
     Dosage: 250 MICROGRAM, BID
     Route: 048
  9. OMEPRAZOLE [Suspect]
     Dosage: 20 MG, QD
     Route: 048
  10. COLCHICINE [Suspect]
     Dosage: 0.6 MG, BID
     Route: 048

REACTIONS (3)
  - GASTROENTERITIS VIRAL [None]
  - DIZZINESS [None]
  - NAUSEA [None]
